FAERS Safety Report 20299123 (Version 1)
Quarter: 2022Q1

REPORT INFORMATION
  Report Type: Spontaneous
  Country: NL (occurrence: NL)
  Receive Date: 20220105
  Receipt Date: 20220105
  Transmission Date: 20220424
  Serious: Yes (Hospitalization, Other)
  Sender: FDA-Public Use
  Company Number: NL-BRISTOL-MYERS SQUIBB COMPANY-BMS-2021-138305

PATIENT
  Age: 71 Year
  Sex: Female
  Weight: 61 kg

DRUGS (9)
  1. APIXABAN [Suspect]
     Active Substance: APIXABAN
     Indication: Pulmonary embolism
     Dosage: 5 MILLIGRAM
     Route: 048
     Dates: start: 20200323, end: 20200512
  2. PANTOPRAZOLE [Suspect]
     Active Substance: PANTOPRAZOLE
     Indication: Dyspepsia
     Dosage: 20 MILLIGRAM, QD
     Route: 048
     Dates: start: 20190918, end: 20200302
  3. PANTOPRAZOLE [Suspect]
     Active Substance: PANTOPRAZOLE
     Dosage: 40 MILLIGRAM, QD
     Route: 048
     Dates: start: 20200302, end: 20200330
  4. PANTOPRAZOLE [Suspect]
     Active Substance: PANTOPRAZOLE
     Dosage: UNK
     Route: 065
  5. ETOPOSIDE [Suspect]
     Active Substance: ETOPOSIDE
     Indication: Non-small cell lung cancer stage III
     Dosage: 80 MG
     Route: 042
     Dates: start: 20200127, end: 20200228
  6. ETOPOSIDE [Suspect]
     Active Substance: ETOPOSIDE
     Indication: Pulmonary embolism
     Dosage: 5 MG
     Route: 048
     Dates: start: 20200323, end: 20200512
  7. CISPLATIN [Suspect]
     Active Substance: CISPLATIN
     Indication: Non-small cell lung cancer stage III
     Dosage: 80 MG
     Route: 042
     Dates: start: 20200127, end: 20200302
  8. BINTRAFUSP ALFA [Suspect]
     Active Substance: BINTRAFUSP ALFA
     Indication: Non-small cell lung cancer stage III
     Dosage: UNK
  9. CLOPIDOGREL BISULFATE [Suspect]
     Active Substance: CLOPIDOGREL BISULFATE
     Indication: Cerebrovascular accident
     Dosage: 75 MILLIGRAM, QD
     Route: 048
     Dates: start: 20191223, end: 20200630

REACTIONS (2)
  - Anaemia [Recovered/Resolved]
  - Gastrointestinal vascular malformation haemorrhagic [Recovered/Resolved]

NARRATIVE: CASE EVENT DATE: 20200210
